FAERS Safety Report 13010828 (Version 1)
Quarter: 2016Q4

REPORT INFORMATION
  Report Type: Spontaneous
  Country: US (occurrence: US)
  Receive Date: 20161208
  Receipt Date: 20161208
  Transmission Date: 20170207
  Serious: No
  Sender: FDA-Public Use
  Company Number: US-PFIZER INC-2016569188

PATIENT
  Sex: Female

DRUGS (3)
  1. ERYTHROMYCIN. [Suspect]
     Active Substance: ERYTHROMYCIN
     Dosage: UNK
  2. MTX [Suspect]
     Active Substance: METHOTREXATE SODIUM
     Dosage: UNK
  3. UTIBID [Suspect]
     Active Substance: OXOLINIC ACID
     Dosage: UNK

REACTIONS (1)
  - Drug hypersensitivity [Unknown]
